FAERS Safety Report 17100264 (Version 1)
Quarter: 2019Q4

REPORT INFORMATION
  Report Type: Spontaneous
  Country: US (occurrence: US)
  Receive Date: 20191202
  Receipt Date: 20191202
  Transmission Date: 20200122
  Serious: No
  Sender: FDA-Public Use
  Company Number: US-TEVA-2019-US-1144942

PATIENT
  Age: 65 Year
  Sex: Female

DRUGS (2)
  1. TEVA CLONAZEPAM TABLET [Suspect]
     Active Substance: CLONAZEPAM
     Indication: ESSENTIAL TREMOR
  2. TEVA CLONAZEPAM TABLET [Suspect]
     Active Substance: CLONAZEPAM
     Indication: SLEEP DISORDER
     Dates: start: 20191118

REACTIONS (9)
  - Insomnia [Unknown]
  - Gastrooesophageal reflux disease [Unknown]
  - Head discomfort [Unknown]
  - Psychomotor hyperactivity [Unknown]
  - Chest discomfort [Unknown]
  - Fatigue [Unknown]
  - Product substitution issue [Unknown]
  - Product use in unapproved indication [Unknown]
  - Headache [Unknown]

NARRATIVE: CASE EVENT DATE: 20191118
